FAERS Safety Report 10072626 (Version 1)
Quarter: 2014Q2

REPORT INFORMATION
  Report Type: Spontaneous
  Country: IR (occurrence: None)
  Receive Date: 20140409
  Receipt Date: 20140409
  Transmission Date: 20141212
  Serious: Yes (Hospitalization)
  Sender: FDA-Public Use
  Company Number: 2014P1002762

PATIENT
  Age: 27 Year
  Sex: Male

DRUGS (3)
  1. CLONIDINE [Suspect]
     Route: 048
  2. CLONAZEPAM [Suspect]
     Route: 048
  3. ALPRAZOLAM [Suspect]
     Route: 048

REACTIONS (11)
  - Loss of consciousness [None]
  - Agitation [None]
  - Electrocardiogram QRS complex prolonged [None]
  - Electrocardiogram QT prolonged [None]
  - Respiratory rate decreased [None]
  - Respiratory acidosis [None]
  - Metabolic alkalosis [None]
  - Blood pressure decreased [None]
  - Bradycardia [None]
  - Hallucinations, mixed [None]
  - Aggression [None]
